FAERS Safety Report 25972219 (Version 3)
Quarter: 2025Q4

REPORT INFORMATION
  Report Type: Spontaneous
  Country: US (occurrence: US)
  Receive Date: 20251029
  Receipt Date: 20251204
  Transmission Date: 20260118
  Serious: No
  Sender: TOLMAR
  Company Number: US-Tolmar-TLM-2025-07873

PATIENT

DRUGS (2)
  1. ELIGARD [Suspect]
     Active Substance: LEUPROLIDE ACETATE
     Indication: Product used for unknown indication
     Dosage: SERIAL NUMBER 9367990729994, NDC?NUMBER 6293546150, GTIN 00362935461500?EXPIRATION DATE: DEC-2026; N
     Route: 065
     Dates: start: 20251009
  2. DEVICE [Suspect]
     Active Substance: DEVICE
     Indication: Product used for unknown indication
     Dosage: SERIAL NUMBER 9367990729994, NDC?NUMBER 6293546150, GTIN 00362935461500?EXPIRATION DATE: DEC-2026; N

REACTIONS (2)
  - Intercepted product preparation error [Unknown]
  - Needle issue [Unknown]

NARRATIVE: CASE EVENT DATE: 20251009
